FAERS Safety Report 4617418-4 (Version None)
Quarter: 2005Q1

REPORT INFORMATION
  Report Type: 
  Country: None (occurrence: None)
  Receive Date: 20050324
  Receipt Date: 20050311
  Transmission Date: 20050727
  Serious: Yes (Other)
  Sender: FDA-Public Use
  Company Number: GB-JNJFOC-20041105810

PATIENT
  Sex: Female
  Weight: 41 kg

DRUGS (9)
  1. REMICADE [Suspect]
     Route: 042
  2. REMICADE [Suspect]
     Route: 042
  3. REMICADE [Suspect]
     Indication: CROHN'S DISEASE
     Route: 042
  4. CALCICHEW [Concomitant]
  5. OMEPRAZOLE [Concomitant]
  6. PAMIDRONATE DISODIUM [Concomitant]
  7. FERROUS SULFATE TAB [Concomitant]
  8. VIT B [Concomitant]
  9. CODEINE PHOSPHATE [Concomitant]

REACTIONS (8)
  - DIARRHOEA [None]
  - DYSPNOEA [None]
  - FEELING ABNORMAL [None]
  - FLUSHING [None]
  - INFUSION RELATED REACTION [None]
  - PALPITATIONS [None]
  - TACHYCARDIA [None]
  - VOMITING [None]
